FAERS Safety Report 12537838 (Version 1)
Quarter: 2016Q3

REPORT INFORMATION
  Report Type: Spontaneous
  Country: US (occurrence: US)
  Receive Date: 20160707
  Receipt Date: 20160707
  Transmission Date: 20161109
  Serious: Yes (Other)
  Sender: FDA-Public Use
  Company Number: US-BAYER-2016-125108

PATIENT
  Age: 66 Year
  Sex: Female
  Weight: 48.98 kg

DRUGS (5)
  1. PHILLIPS^ LAXATIVE DIETARY SUPPLEMENT [Suspect]
     Active Substance: MAGNESIUM OXIDE
     Indication: CONSTIPATION
     Dosage: 8 DF, QD
     Route: 048
     Dates: start: 2008
  2. AXID [Concomitant]
     Active Substance: NIZATIDINE
  3. MILK OF MAGNESIA ORIGINAL [Suspect]
     Active Substance: MAGNESIUM HYDROXIDE
     Indication: CONSTIPATION
     Dosage: UNK
  4. SINGULAIR [Concomitant]
     Active Substance: MONTELUKAST SODIUM
  5. SYNTHROID [Concomitant]
     Active Substance: LEVOTHYROXINE SODIUM

REACTIONS (4)
  - Drug dependence [Not Recovered/Not Resolved]
  - Nausea [None]
  - Patient dissatisfaction with treatment [None]
  - Product use issue [None]

NARRATIVE: CASE EVENT DATE: 2008
